FAERS Safety Report 4337139-5 (Version None)
Quarter: 2004Q2

REPORT INFORMATION
  Report Type: 
  Country: None (occurrence: None)
  Receive Date: 20040408
  Receipt Date: 20040324
  Transmission Date: 20050107
  Serious: Yes (Hospitalization)
  Sender: FDA-Public Use
  Company Number: 23457 (0)

PATIENT
  Age: 45 Year
  Sex: Female

DRUGS (1)
  1. FLECAINIDE ACETATE [Suspect]
     Dosage: 20 TABLETS AS OVERDOSE (2000 MG) ORAL
     Route: 048

REACTIONS (4)
  - CARDIO-RESPIRATORY ARREST [None]
  - INTENTIONAL OVERDOSE [None]
  - SUICIDE ATTEMPT [None]
  - VENTRICULAR FIBRILLATION [None]
